FAERS Safety Report 16806408 (Version 1)
Quarter: 2019Q3

REPORT INFORMATION
  Report Type: Report from Study
  Country: US (occurrence: US)
  Receive Date: 20190913
  Receipt Date: 20190913
  Transmission Date: 20191005
  Serious: Yes (Hospitalization)
  Sender: FDA-Public Use
  Company Number: US-ACTELION-A-NJ2018-183206

PATIENT
  Age: 58 Year
  Sex: Female
  Weight: 70.75 kg

DRUGS (3)
  1. ELIQUIS [Concomitant]
     Active Substance: APIXABAN
  2. VELETRI [Suspect]
     Active Substance: EPOPROSTENOL
     Dosage: 40 NG/KG, PER MIN
     Route: 042
  3. VELETRI [Suspect]
     Active Substance: EPOPROSTENOL
     Indication: PULMONARY ARTERIAL HYPERTENSION
     Dosage: 10.29 NG/KG, PER MIN
     Route: 042

REACTIONS (11)
  - Flushing [Unknown]
  - Catheter management [Unknown]
  - Lung transplant [Recovering/Resolving]
  - Catheter site discolouration [Unknown]
  - Paraesthesia [Unknown]
  - Headache [Unknown]
  - Back pain [Unknown]
  - Erythema [Unknown]
  - Pain in jaw [Unknown]
  - Catheter site infection [Unknown]
  - Catheter site pruritus [Unknown]

NARRATIVE: CASE EVENT DATE: 201903
